FAERS Safety Report 14992050 (Version 1)
Quarter: 2018Q2

REPORT INFORMATION
  Report Type: Report from Study
  Country: CA (occurrence: CA)
  Receive Date: 20180608
  Receipt Date: 20180608
  Transmission Date: 20180711
  Serious: Yes (Death)
  Sender: FDA-Public Use
  Company Number: CA-HLSUS-2018-CA-000876

PATIENT
  Age: 83 Year
  Sex: Male

DRUGS (1)
  1. CLOZAPINE. [Suspect]
     Active Substance: CLOZAPINE
     Indication: DEMENTIA WITH LEWY BODIES
     Dosage: 2 EVERY 1 DAY

REACTIONS (3)
  - Dementia with Lewy bodies [Fatal]
  - Failure to thrive [Fatal]
  - Neurodegenerative disorder [Fatal]
